FAERS Safety Report 7381111-8 (Version None)
Quarter: 2011Q1

REPORT INFORMATION
  Report Type: 
  Country: None (occurrence: None)
  Receive Date: 20110329
  Receipt Date: 20100805
  Transmission Date: 20110831
  Serious: No
  Sender: FDA-Public Use
  Company Number: US-AMGEN-KDL429236

PATIENT
  Sex: Male

DRUGS (18)
  1. FLUOCINONIDE [Concomitant]
     Dosage: UNK UNK, UNK
     Route: 061
  2. MUPIROCIN [Concomitant]
     Dosage: UNK UNK, UNK
  3. CLONIDINE [Concomitant]
     Dosage: UNK UNK, UNK
  4. PHOSLO [Concomitant]
     Dosage: 667 MG, UNK
  5. METOCLOPRAMIDE [Concomitant]
     Dosage: UNK UNK, PRN
  6. CALCITRIOL [Concomitant]
     Dosage: UNK UNK, UNK
  7. SENSIPAR [Suspect]
     Indication: HYPERPARATHYROIDISM SECONDARY
     Dosage: 30 MG, QD
     Dates: start: 20100728, end: 20100803
  8. INSULIN [Concomitant]
     Dosage: UNK UNK, UNK
  9. INSULIN LISPRO [Concomitant]
     Dosage: UNK UNK, UNK
  10. NIFEDIPINE [Concomitant]
     Dosage: UNK UNK, UNK
  11. ASPIRIN [Concomitant]
     Dosage: UNK UNK, UNK
  12. DIPHENHYDRAMINE HYDROCHLORIDE [Concomitant]
     Dosage: UNK UNK, UNK
     Route: 048
  13. EPOGEN [Suspect]
     Indication: DIALYSIS
     Dosage: UNK UNK, UNK
  14. SIMVASTATIN [Concomitant]
     Dosage: UNK UNK, UNK
  15. RANITIDINE HYDROCHLORIDE [Concomitant]
     Dosage: UNK UNK, UNK
  16. INSULIN GLARGINE [Concomitant]
     Dosage: UNK UNK, UNK
  17. LISINOPRIL [Concomitant]
     Dosage: UNK UNK, UNK
  18. CLOPIDOGREL BISULFATE [Concomitant]
     Dosage: UNK UNK, UNK

REACTIONS (9)
  - PAIN OF SKIN [None]
  - SKIN DISCOLOURATION [None]
  - ARTHRALGIA [None]
  - GAIT DISTURBANCE [None]
  - MOBILITY DECREASED [None]
  - BONE PAIN [None]
  - INSOMNIA [None]
  - FATIGUE [None]
  - MYALGIA [None]
